FAERS Safety Report 6745200-0 (Version None)
Quarter: 2010Q2

REPORT INFORMATION
  Report Type: 
  Country: None (occurrence: None)
  Receive Date: 20100528
  Receipt Date: 20100520
  Transmission Date: 20101027
  Serious: Yes (Other)
  Sender: FDA-Public Use
  Company Number: US-BIOGENIDEC-2010BI016898

PATIENT
  Sex: Female

DRUGS (1)
  1. TYSABRI [Suspect]
     Indication: MULTIPLE SCLEROSIS
     Route: 042
     Dates: start: 20091118

REACTIONS (6)
  - ADRENAL NEOPLASM [None]
  - BLOOD PRESSURE INCREASED [None]
  - CONTUSION [None]
  - NEOPLASM [None]
  - NEPHROLITHIASIS [None]
  - PARATHYROID TUMOUR [None]
